FAERS Safety Report 13172435 (Version 1)
Quarter: 2017Q1

REPORT INFORMATION
  Report Type: Spontaneous
  Country: US (occurrence: US)
  Receive Date: 20170130
  Receipt Date: 20170130
  Transmission Date: 20170428
  Serious: No
  Sender: FDA-Public Use
  Company Number: None

PATIENT
  Age: 43 Year
  Sex: Female

DRUGS (1)
  1. HUMIRA [Suspect]
     Active Substance: ADALIMUMAB
     Indication: RHEUMATOID ARTHRITIS
     Route: 058
     Dates: start: 20170110

REACTIONS (4)
  - Swelling face [None]
  - Peripheral swelling [None]
  - Wrong technique in product usage process [None]
  - Hyperhidrosis [None]

NARRATIVE: CASE EVENT DATE: 20170110
